FAERS Safety Report 20695071 (Version 3)
Quarter: 2022Q2

REPORT INFORMATION
  Report Type: Spontaneous
  Country: DE (occurrence: DE)
  Receive Date: 20220411
  Receipt Date: 20220504
  Transmission Date: 20220720
  Serious: Yes (Death, Other)
  Sender: FDA-Public Use
  Company Number: DE-UNITED THERAPEUTICS-UNT-2022-007841

PATIENT

DRUGS (2)
  1. REMODULIN [Suspect]
     Active Substance: TREPROSTINIL
     Indication: Product used for unknown indication
     Dosage: UNK, CONTINUING
     Route: 041
     Dates: start: 20161109
  2. REMODULIN [Suspect]
     Active Substance: TREPROSTINIL
     Dosage: 0.1086 ?G/KG, CONTINUING
     Route: 041
     Dates: end: 20220329

REACTIONS (1)
  - Death [Fatal]

NARRATIVE: CASE EVENT DATE: 20220329
